FAERS Safety Report 8237620-2 (Version None)
Quarter: 2012Q1

REPORT INFORMATION
  Report Type: 
  Country: None (occurrence: None)
  Receive Date: 20120327
  Receipt Date: 20120319
  Transmission Date: 20120608
  Serious: Yes (Disabling, Other)
  Sender: FDA-Public Use
  Company Number: US-US-EMD SERONO, INC.-7120305

PATIENT
  Sex: Female

DRUGS (1)
  1. REBIF [Suspect]
     Indication: MULTIPLE SCLEROSIS
     Route: 058
     Dates: start: 20110915

REACTIONS (5)
  - DEAFNESS UNILATERAL [None]
  - MULTIPLE SCLEROSIS RELAPSE [None]
  - LETHARGY [None]
  - INNER EAR DISORDER [None]
  - VERTIGO [None]
